FAERS Safety Report 12701253 (Version 10)
Quarter: 2020Q4

REPORT INFORMATION
  Report Type: Other
  Country: DK (occurrence: DK)
  Receive Date: 20160831
  Receipt Date: 20201005
  Transmission Date: 20210113
  Serious: Yes (Other)
  Sender: FDA-Public Use
  Company Number: DK-ROCHE-1821907

PATIENT

DRUGS (2)
  1. BEVACIZUMAB. [Suspect]
     Active Substance: BEVACIZUMAB
     Indication: OVARIAN EPITHELIAL CANCER
     Dosage: FIXED DOSE
     Route: 042
  2. NIRAPARIB [Suspect]
     Active Substance: NIRAPARIB
     Indication: OVARIAN EPITHELIAL CANCER
     Dosage: ESCALATING DOSES 100 MG, 200 MG AND 300 MG
     Route: 048

REACTIONS (27)
  - Hypomagnesaemia [Unknown]
  - Pneumonia [Unknown]
  - Thrombocytopenia [Unknown]
  - Abdominal pain [Unknown]
  - Fatigue [Unknown]
  - Vomiting [Unknown]
  - Dyspnoea [Unknown]
  - Respiratory tract infection [Unknown]
  - Intestinal obstruction [Unknown]
  - Syncope [Unknown]
  - Neutropenia [Unknown]
  - Urinary tract infection [Unknown]
  - Ascites [Unknown]
  - Proteinuria [Unknown]
  - Constipation [Unknown]
  - Deep vein thrombosis [Unknown]
  - Hyponatraemia [Unknown]
  - Insomnia [Unknown]
  - Hypertension [Unknown]
  - Gastrointestinal disorder [Unknown]
  - Ileus [Unknown]
  - Anaemia [Unknown]
  - Decreased appetite [Unknown]
  - Headache [Unknown]
  - Pain of skin [Unknown]
  - Pain in extremity [Unknown]
  - Febrile neutropenia [Unknown]
